FAERS Safety Report 5755325-4 (Version None)
Quarter: 2008Q2

REPORT INFORMATION
  Report Type: 
  Country: None (occurrence: None)
  Receive Date: 20080529
  Receipt Date: 20080529
  Transmission Date: 20081010
  Serious: Yes (Other)
  Sender: FDA-Public Use
  Company Number: None

PATIENT
  Age: 58 Year
  Sex: Male
  Weight: 93.8946 kg

DRUGS (2)
  1. FLECTOR [Suspect]
     Indication: MYALGIA
     Dosage: ONE PATCH ONE A DAY FOR 12 H TOP
     Route: 061
     Dates: start: 20080510, end: 20080515
  2. FLECTOR [Suspect]
     Indication: NEUROPATHY PERIPHERAL
     Dosage: ONE PATCH ONE A DAY FOR 12 H TOP
     Route: 061
     Dates: start: 20080510, end: 20080515

REACTIONS (1)
  - HYPOACUSIS [None]
